FAERS Safety Report 5492007-0 (Version None)
Quarter: 2007Q4

REPORT INFORMATION
  Report Type: 
  Country: None (occurrence: None)
  Receive Date: 20071022
  Receipt Date: 20071012
  Transmission Date: 20080405
  Serious: Yes (Hospitalization)
  Sender: FDA-Public Use
  Company Number: B0490862A

PATIENT
  Age: 39 Year
  Sex: Female

DRUGS (4)
  1. EPIVIR [Suspect]
     Indication: HIV INFECTION
     Dosage: 300MG PER DAY
     Route: 048
     Dates: start: 20011201
  2. INDINIVIR SULFATE [Suspect]
     Indication: DRUG USE FOR UNKNOWN INDICATION
     Route: 065
  3. NEVIRAPINE [Suspect]
     Indication: DRUG USE FOR UNKNOWN INDICATION
     Dosage: 200MG TWICE PER DAY
     Route: 065
  4. SEPTRIN [Concomitant]
     Indication: PROPHYLAXIS

REACTIONS (5)
  - CONSTIPATION [None]
  - HEPATIC FAILURE [None]
  - LACTIC ACIDOSIS [None]
  - MITOCHONDRIAL CYTOPATHY [None]
  - PORTAL VEIN THROMBOSIS [None]
